FAERS Safety Report 8096198-7 (Version None)
Quarter: 2012Q1

REPORT INFORMATION
  Report Type: 
  Country: None (occurrence: None)
  Receive Date: 20120129
  Receipt Date: 20111219
  Transmission Date: 20120608
  Serious: No
  Sender: FDA-Public Use
  Company Number: US-ABBOTT-11P-163-0882312-00

PATIENT
  Age: 42 Year
  Sex: Female
  Weight: 90.8 kg

DRUGS (7)
  1. ZANTAC [Concomitant]
     Indication: PRODUCT USED FOR UNKNOWN INDICATION
  2. HUMIRA [Suspect]
     Indication: RHEUMATOID ARTHRITIS
     Dates: start: 20110929, end: 20111124
  3. IBUPROFEN [Concomitant]
     Indication: PAIN
  4. IBUPROFEN [Concomitant]
     Indication: PYREXIA
  5. LEVAQUIN [Concomitant]
     Indication: INFECTION
     Dosage: UNTIL 23 DEC 2011
     Dates: start: 20111216
  6. DECONGESTANT [Concomitant]
     Indication: PRODUCT USED FOR UNKNOWN INDICATION
     Dosage: OTC
  7. ANTIBIOTIC [Concomitant]
     Indication: PRODUCT USED FOR UNKNOWN INDICATION

REACTIONS (10)
  - PYREXIA [None]
  - NASOPHARYNGITIS [None]
  - RHEUMATOID ARTHRITIS [None]
  - COUGH [None]
  - URINARY TRACT INFECTION [None]
  - BACK PAIN [None]
  - SINUSITIS [None]
  - PAIN [None]
  - UPPER RESPIRATORY TRACT INFECTION [None]
  - MUSCULOSKELETAL STIFFNESS [None]
